FAERS Safety Report 6133146-0 (Version None)
Quarter: 2009Q1

REPORT INFORMATION
  Report Type: 
  Country: None (occurrence: None)
  Receive Date: 20090326
  Receipt Date: 20090317
  Transmission Date: 20090719
  Serious: Yes (Hospitalization)
  Sender: FDA-Public Use
  Company Number: US-AMGEN-QUU338880

PATIENT
  Sex: Female

DRUGS (1)
  1. ENBREL [Suspect]
     Indication: RHEUMATOID ARTHRITIS
     Route: 058

REACTIONS (6)
  - ATROPHY [None]
  - BACK INJURY [None]
  - FALL [None]
  - INTERVERTEBRAL DISC PROTRUSION [None]
  - MUSCULAR WEAKNESS [None]
  - NERVE ROOT INJURY LUMBAR [None]
